FAERS Safety Report 10415212 (Version 10)
Quarter: 2016Q2

REPORT INFORMATION
  Report Type: Report from Study
  Country: MA (occurrence: MA)
  Receive Date: 20140828
  Receipt Date: 20160530
  Transmission Date: 20160815
  Serious: Yes (Other)
  Sender: FDA-Public Use
  Company Number: MA-ROCHE-1434265

PATIENT
  Age: 49 Year
  Sex: Female

DRUGS (24)
  1. TRASTUZUMAB [Suspect]
     Active Substance: TRASTUZUMAB
     Dosage: MAINTENANCE DOSE ; LAST DOSE PRIOR TO SAE : 18/JUN/2014; TEMPORARILY INTERRUPTED ON 10/JUL/2014
     Route: 042
     Dates: end: 20140818
  2. ACICLOVIR [Concomitant]
     Active Substance: ACYCLOVIR
     Dosage: 4 APLICATIONS PER DAY
     Route: 061
     Dates: start: 20140310, end: 20140325
  3. TRAMADOL. [Concomitant]
     Active Substance: TRAMADOL
     Route: 065
     Dates: start: 20140318, end: 20140701
  4. PERTUZUMAB [Suspect]
     Active Substance: PERTUZUMAB
     Indication: HER-2 POSITIVE BREAST CANCER
     Dosage: LOADING DOSE
     Route: 042
     Dates: start: 20140225, end: 20140225
  5. TRASTUZUMAB [Suspect]
     Active Substance: TRASTUZUMAB
     Indication: HER-2 POSITIVE BREAST CANCER
     Dosage: LOADING DOSE
     Route: 042
     Dates: start: 20140226, end: 20140226
  6. MICONAZOLE. [Concomitant]
     Active Substance: MICONAZOLE
     Dosage: 4 APLICATIONS PER DAY
     Route: 061
     Dates: start: 20140307, end: 20140313
  7. PREDNISOLONE. [Concomitant]
     Active Substance: PREDNISOLONE
     Route: 065
     Dates: start: 20140226, end: 20140226
  8. TRAMADOL. [Concomitant]
     Active Substance: TRAMADOL
     Route: 065
     Dates: start: 20140123, end: 20140318
  9. PARACETAMOL [Concomitant]
     Active Substance: ACETAMINOPHEN
     Route: 065
     Dates: start: 20140318, end: 20140701
  10. LOPERAMIDE [Concomitant]
     Active Substance: LOPERAMIDE
     Route: 065
     Dates: start: 20140417, end: 20140422
  11. IMODIUM [Concomitant]
     Active Substance: LOPERAMIDE HYDROCHLORIDE
     Route: 065
     Dates: start: 20140524, end: 20140605
  12. PERTUZUMAB [Suspect]
     Active Substance: PERTUZUMAB
     Dosage: MAINTENANCE DOSE ; LAST DOSE PRIOR TO SAE : 18/JUN/2014; TEMPORARILY INTERRUPTED ON 10/JUL/2014
     Route: 042
     Dates: end: 20140818
  13. DOCETAXEL. [Suspect]
     Active Substance: DOCETAXEL
     Indication: HER-2 POSITIVE BREAST CANCER
     Dosage: LAST DOSE PRIOR TO SAE: 20/MAY/2014
     Route: 042
     Dates: start: 20140226, end: 20140618
  14. LOPERAMIDE [Concomitant]
     Active Substance: LOPERAMIDE
     Route: 065
     Dates: start: 20140310, end: 20140311
  15. PARACETAMOL [Concomitant]
     Active Substance: ACETAMINOPHEN
     Route: 065
     Dates: start: 20140123, end: 20140318
  16. METHYL PREDNISOLONE SODIUM SUCCINATE [Concomitant]
     Active Substance: METHYLPREDNISOLONE SODIUM SUCCINATE
     Route: 065
     Dates: start: 20140225
  17. MICONAZOLE. [Concomitant]
     Active Substance: MICONAZOLE
     Dosage: 4 APPLICATIONS
     Route: 061
     Dates: start: 20140401, end: 20140403
  18. HYDROXIZINE CHLORIDE [Concomitant]
     Route: 065
     Dates: start: 20140226, end: 20140226
  19. ONDANSETRON [Concomitant]
     Active Substance: ONDANSETRON
     Route: 065
     Dates: start: 20140226, end: 20140520
  20. ONDANSETRON [Concomitant]
     Active Substance: ONDANSETRON
     Route: 065
     Dates: start: 20140226, end: 20140522
  21. PREDNISONE. [Concomitant]
     Active Substance: PREDNISONE
     Indication: PREMEDICATION
     Route: 065
     Dates: start: 20140227, end: 20140625
  22. VASELINE OFFICINALE [Concomitant]
     Dosage: 6 APPLICATIONS
     Route: 061
     Dates: start: 20140401, end: 20140404
  23. DOMPERIDONE [Concomitant]
     Active Substance: DOMPERIDONE
     Route: 065
     Dates: start: 20140227, end: 20140522
  24. SOLU-MEDROL [Concomitant]
     Active Substance: METHYLPREDNISOLONE SODIUM SUCCINATE
     Route: 065
     Dates: start: 20140618, end: 20140618

REACTIONS (2)
  - Hepatitis C [Not Recovered/Not Resolved]
  - Hepatocellular injury [Not Recovered/Not Resolved]

NARRATIVE: CASE EVENT DATE: 20140709
